FAERS Safety Report 5717770-2 (Version None)
Quarter: 2008Q2

REPORT INFORMATION
  Report Type: 
  Country: None (occurrence: None)
  Receive Date: 20080425
  Receipt Date: 20080414
  Transmission Date: 20081010
  Serious: Yes (Hospitalization)
  Sender: FDA-Public Use
  Company Number: US-AMGEN-QUU274530

PATIENT
  Sex: Female

DRUGS (1)
  1. ENBREL [Suspect]
     Indication: RHEUMATOID ARTHRITIS
     Dates: start: 20030201

REACTIONS (3)
  - AORTIC VALVE REPLACEMENT [None]
  - BLOOD GLUCOSE INCREASED [None]
  - DYSPNOEA [None]
